FAERS Safety Report 13346347 (Version 2)
Quarter: 2017Q2

REPORT INFORMATION
  Report Type: Spontaneous
  Country: US (occurrence: US)
  Receive Date: 20170317
  Receipt Date: 20170418
  Transmission Date: 20170830
  Serious: Yes (Other)
  Sender: FDA-Public Use
  Company Number: US-BAYER-2017-051060

PATIENT
  Age: 28 Year
  Sex: Female
  Weight: 96.61 kg

DRUGS (4)
  1. METRONIDAZOLE. [Concomitant]
     Active Substance: METRONIDAZOLE
     Dosage: 1 DF, BID
     Dates: start: 20160316
  2. COLACE [Concomitant]
     Active Substance: DOCUSATE SODIUM
     Dosage: 1 DF, BID
     Dates: start: 20160316
  3. MIRENA [Suspect]
     Active Substance: LEVONORGESTREL
     Indication: CONTRACEPTION
     Dosage: 20 MCG/24HR, CONT
     Route: 015
     Dates: start: 20160329, end: 20160630
  4. ZOFRAN [Concomitant]
     Active Substance: ONDANSETRON HYDROCHLORIDE
     Dosage: 1 DF, Q8HR
     Dates: start: 20160505

REACTIONS (13)
  - Endometritis [None]
  - Vomiting [None]
  - Chills [None]
  - Pyrexia [None]
  - Nausea [None]
  - Bacterial infection [None]
  - Genital haemorrhage [Recovered/Resolved]
  - Device dislocation [None]
  - Vaginal infection [None]
  - Pelvic pain [None]
  - Vaginal discharge [None]
  - Sexually transmitted disease [None]
  - Abdominal pain lower [None]

NARRATIVE: CASE EVENT DATE: 2016
